FAERS Safety Report 15599189 (Version 2)
Quarter: 2018Q4

REPORT INFORMATION
  Report Type: Spontaneous
  Country: JP (occurrence: JP)
  Receive Date: 20181108
  Receipt Date: 20181116
  Transmission Date: 20190205
  Serious: Yes (Life-Threatening, Hospitalization, Other)
  Sender: FDA-Public Use
  Company Number: JP-PFIZER INC-2018452906

PATIENT
  Age: 28 Year
  Sex: Female

DRUGS (7)
  1. DOXORUBICIN HCL [Suspect]
     Active Substance: DOXORUBICIN HYDROCHLORIDE
     Indication: MYXOFIBROSARCOMA
     Dosage: UNK, CYCLIC (TWO CYCLES OF A COMBINATION OF IFOSFAMIDE (IFO) AND DOXORUBICINE (DXR))
  2. IFOSFAMIDE. [Suspect]
     Active Substance: IFOSFAMIDE
     Dosage: UNK, CYCLIC (THREE CYCLES OF A COMBINATION OF IFOSFAMIDE, CARBOPLATIN (CBDCA) AND ETOPOSIDE (VP-16))
  3. ETOPOSIDE. [Suspect]
     Active Substance: ETOPOSIDE
     Indication: MYXOFIBROSARCOMA
     Dosage: UNK, CYCLIC (THREE CYCLES OF A COMBINATION OF IFOSFAMIDE, CARBOPLATIN (CBDCA) AND ETOPOSIDE (VP-16))
  4. CARBOPLATIN. [Suspect]
     Active Substance: CARBOPLATIN
     Dosage: UNK, CYCLIC (13 CYCLES OF A COMBINATION OF CARBOPLATIN AND ETOPOSIDE)
  5. CARBOPLATIN. [Suspect]
     Active Substance: CARBOPLATIN
     Indication: MYXOFIBROSARCOMA
     Dosage: UNK, CYCLIC (THREE CYCLES OF A COMBINATION OF IFOSFAMIDE, CARBOPLATIN (CBDCA) AND ETOPOSIDE (VP-16))
  6. IFOSFAMIDE. [Suspect]
     Active Substance: IFOSFAMIDE
     Indication: MYXOFIBROSARCOMA
     Dosage: UNK, CYCLIC (TWO CYCLES OF A COMBINATION OF IFOSFAMIDE (IFO) AND DOXORUBICINE (DXR))
  7. ETOPOSIDE. [Suspect]
     Active Substance: ETOPOSIDE
     Dosage: UNK, CYCLIC (13 CYCLES OF A COMBINATION OF CARBOPLATIN AND ETOPOSIDE)

REACTIONS (5)
  - Second primary malignancy [Recovering/Resolving]
  - Acute promyelocytic leukaemia [Recovering/Resolving]
  - Genital haemorrhage [Unknown]
  - Thrombocytopenia [Unknown]
  - Leukocytosis [Unknown]
